FAERS Safety Report 16413369 (Version 1)
Quarter: 2019Q2

REPORT INFORMATION
  Report Type: Spontaneous
  Country: QA (occurrence: QA)
  Receive Date: 20190611
  Receipt Date: 20190611
  Transmission Date: 20190711
  Serious: Yes (Life-Threatening)
  Sender: FDA-Public Use
  Company Number: QA-SUN PHARMACEUTICAL INDUSTRIES LTD-2019R1-201074

PATIENT
  Age: 12 Year
  Sex: Female

DRUGS (5)
  1. LEVONORGESTREL/ETHINYL ESTRADIOL [Suspect]
     Active Substance: ETHINYL ESTRADIOL\LEVONORGESTREL
     Indication: MENORRHAGIA
     Dosage: LEVONORGESTREL 150 MCG - ETHINYL ESTRADIOL 30 MG, TWICE DAILY
     Route: 048
  2. ESTRADIOL. [Suspect]
     Active Substance: ESTRADIOL
     Indication: MENORRHAGIA
     Dosage: 2 MILLIGRAM, SINGLE
     Route: 065
  3. DESMOPRESSIN [Concomitant]
     Active Substance: DESMOPRESSIN
     Indication: MENORRHAGIA
     Dosage: 1 DOSE
     Route: 065
  4. PROGESTERONE. [Suspect]
     Active Substance: PROGESTERONE
     Indication: MENORRHAGIA
     Dosage: 50 MG
     Route: 065
  5. NORTHESTERONE [Suspect]
     Active Substance: NORETHINDRONE
     Indication: MENORRHAGIA
     Dosage: 10 MILLIGRAM, BID
     Route: 065

REACTIONS (3)
  - Hemiparesis [Unknown]
  - Cerebrovascular accident [Unknown]
  - Cerebral infarction [Recovered/Resolved]
